FAERS Safety Report 9382932 (Version 4)
Quarter: 2013Q3

REPORT INFORMATION
  Report Type: Spontaneous
  Country: JP (occurrence: JP)
  Receive Date: 20130703
  Receipt Date: 20130802
  Transmission Date: 20140515
  Serious: Yes (Other)
  Sender: FDA-Public Use
  Company Number: JP-ABBOTT-11P-087-0881126-00

PATIENT
  Age: 29 Year
  Sex: Male
  Weight: 60 kg

DRUGS (12)
  1. NORVIR [Suspect]
     Indication: HIV INFECTION
  2. EMTRICITABINE W/TENOFOVIR [Suspect]
     Indication: HIV INFECTION
  3. DANOVIR [Suspect]
     Indication: HIV INFECTION
  4. PREDNISOLONE [Concomitant]
     Indication: PRODUCT USED FOR UNKNOWN INDICATION
  5. BACTER [Concomitant]
     Indication: PRODUCT USED FOR UNKNOWN INDICATION
  6. WYPAX [Concomitant]
     Indication: PRODUCT USED FOR UNKNOWN INDICATION
  7. DOGMATYL [Concomitant]
     Indication: PRODUCT USED FOR UNKNOWN INDICATION
  8. PAXIL [Concomitant]
     Indication: PRODUCT USED FOR UNKNOWN INDICATION
  9. COIX SEED EXTRACT [Concomitant]
     Indication: PRODUCT USED FOR UNKNOWN INDICATION
  10. POLARAMINE [Concomitant]
     Indication: PRODUCT USED FOR UNKNOWN INDICATION
  11. BIOFERMIN [Concomitant]
     Indication: PRODUCT USED FOR UNKNOWN INDICATION
  12. BESELNA [Concomitant]
     Indication: PRODUCT USED FOR UNKNOWN INDICATION

REACTIONS (2)
  - Progressive multifocal leukoencephalopathy [Recovered/Resolved]
  - Immune reconstitution inflammatory syndrome [Recovered/Resolved]
